FAERS Safety Report 21578188 (Version 3)
Quarter: 2023Q1

REPORT INFORMATION
  Report Type: Spontaneous
  Country: US (occurrence: US)
  Receive Date: 20221110
  Receipt Date: 20230106
  Transmission Date: 20230418
  Serious: No
  Sender: FDA-Public Use
  Company Number: US-LUNDBECK-DKLU3054496

PATIENT
  Age: 63 Year

DRUGS (4)
  1. VYEPTI [Suspect]
     Active Substance: EPTINEZUMAB-JJMR
     Indication: Migraine
     Route: 041
     Dates: start: 20221019
  2. VYEPTI [Suspect]
     Active Substance: EPTINEZUMAB-JJMR
     Route: 041
     Dates: start: 20221026
  3. ADVIL [Concomitant]
     Active Substance: IBUPROFEN
     Indication: Migraine
     Route: 065
  4. TYLENOL RAPID RELIEF [Concomitant]
     Indication: Migraine
     Route: 065

REACTIONS (3)
  - Migraine [Not Recovered/Not Resolved]
  - Pruritus [Recovered/Resolved]
  - Therapeutic response shortened [Unknown]

NARRATIVE: CASE EVENT DATE: 20221104
